FAERS Safety Report 6795253-9 (Version None)
Quarter: 2010Q2

REPORT INFORMATION
  Report Type: 
  Country: None (occurrence: None)
  Receive Date: 20100625
  Receipt Date: 20100614
  Transmission Date: 20101027
  Serious: Yes (Other)
  Sender: FDA-Public Use
  Company Number: US-JNJCH-2010014552

PATIENT
  Age: 56 Year
  Sex: Female
  Weight: 81.6 kg

DRUGS (1)
  1. VISINE EYE DROPS [Suspect]
     Indication: EYE DISORDER
     Dosage: TEXT:ONE DROP ONE TIME
     Route: 047
     Dates: start: 20100611, end: 20100611

REACTIONS (4)
  - EYE BURNS [None]
  - EYE SWELLING [None]
  - OFF LABEL USE [None]
  - VISION BLURRED [None]
